FAERS Safety Report 7774784-9 (Version None)
Quarter: 2011Q3

REPORT INFORMATION
  Report Type: 
  Country: None (occurrence: None)
  Receive Date: 20110923
  Receipt Date: 20110914
  Transmission Date: 20111222
  Serious: Yes (Death)
  Sender: FDA-Public Use
  Company Number: NL-ACTELION-A-CH2011-52596

PATIENT
  Sex: Female
  Weight: 80 kg

DRUGS (2)
  1. MORPHINE [Suspect]
  2. TRACLEER [Suspect]
     Indication: PULMONARY ARTERIAL HYPERTENSION
     Dosage: 125 MG, BID
     Route: 048
     Dates: start: 20100916

REACTIONS (6)
  - INTESTINAL PERFORATION [None]
  - NAUSEA [None]
  - LAPAROTOMY [None]
  - MUSCULOSKELETAL PAIN [None]
  - PAIN [None]
  - CONSTIPATION [None]
